FAERS Safety Report 5060769-2 (Version None)
Quarter: 2006Q2

REPORT INFORMATION
  Report Type: 
  Country: None (occurrence: None)
  Receive Date: 20060630
  Receipt Date: 20060306
  Transmission Date: 20061013
  Serious: Yes (Hospitalization)
  Sender: FDA-Public Use
  Company Number: US200603001561

PATIENT
  Age: 15 Year
  Sex: Female

DRUGS (2)
  1. HUMALOG [Suspect]
     Indication: DIABETES MELLITUS
     Dosage: SUB. PUMP
     Route: 058
  2. GUAIFENESIN (GUAIFENESIN) [Concomitant]

REACTIONS (1)
  - BLOOD GLUCOSE INCREASED [None]
